FAERS Safety Report 16366032 (Version 1)
Quarter: 2019Q2

REPORT INFORMATION
  Report Type: Spontaneous
  Country: US (occurrence: US)
  Receive Date: 20190529
  Receipt Date: 20190529
  Transmission Date: 20190711
  Serious: Yes (Hospitalization, Other)
  Sender: FDA-Public Use
  Company Number: US-SA-2019SA143399

PATIENT
  Age: 84 Year
  Sex: Female

DRUGS (1)
  1. LANTUS SOLOSTAR [Suspect]
     Active Substance: INSULIN GLARGINE
     Dosage: 30 U, HS
     Route: 065

REACTIONS (5)
  - Fall [Unknown]
  - Dementia [Unknown]
  - Upper limb fracture [Unknown]
  - Hypoacusis [Unknown]
  - Screaming [Unknown]

NARRATIVE: CASE EVENT DATE: 201809
